FAERS Safety Report 5042517-5 (Version None)
Quarter: 2006Q2

REPORT INFORMATION
  Report Type: 
  Country: None (occurrence: None)
  Receive Date: 20060627
  Receipt Date: 20060615
  Transmission Date: 20061013
  Serious: Yes (Hospitalization, Other)
  Sender: FDA-Public Use
  Company Number: 2006-06-0988

PATIENT
  Age: 50 Year
  Sex: Male

DRUGS (3)
  1. PEG-INTRON [Suspect]
     Indication: HEPATITIS C
     Dosage: 50 MCG QW SUBCUTANEOUS
     Route: 058
     Dates: start: 20060523, end: 20060601
  2. REBETOL [Suspect]
     Indication: HEPATITIS C
     Dosage: 800 MG ORAL
     Route: 048
     Dates: start: 20060523, end: 20060601
  3. LENDORMIN [Concomitant]

REACTIONS (6)
  - AGGRESSION [None]
  - CLAVICLE FRACTURE [None]
  - DIZZINESS [None]
  - FALL [None]
  - HALLUCINATIONS, MIXED [None]
  - MULTIPLE DRUG OVERDOSE INTENTIONAL [None]
